FAERS Safety Report 8114116-X (Version None)
Quarter: 2012Q1

REPORT INFORMATION
  Report Type: 
  Country: None (occurrence: None)
  Receive Date: 20120204
  Receipt Date: 20120126
  Transmission Date: 20120608
  Serious: Yes (Other)
  Sender: FDA-Public Use
  Company Number: US-ASTRAZENECA-2012SE02989

PATIENT
  Age: 19 Year
  Sex: Female

DRUGS (2)
  1. PANTOPRAZOLE [Concomitant]
  2. NEXIUM [Suspect]
     Route: 048

REACTIONS (3)
  - DRUG DOSE OMISSION [None]
  - ILL-DEFINED DISORDER [None]
  - MALAISE [None]
